FAERS Safety Report 15115088 (Version 8)
Quarter: 2019Q2

REPORT INFORMATION
  Report Type: Spontaneous
  Country: US (occurrence: US)
  Receive Date: 20180706
  Receipt Date: 20190429
  Transmission Date: 20190711
  Serious: Yes (Death, Disabling, Other)
  Sender: FDA-Public Use
  Company Number: US-PFIZER INC-2018274583

PATIENT
  Age: 56 Year
  Sex: Female
  Weight: 76.2 kg

DRUGS (77)
  1. PRILOSEC [Suspect]
     Active Substance: OMEPRAZOLE MAGNESIUM
     Indication: GASTROINTESTINAL DISORDER
  2. TUMS [Concomitant]
     Active Substance: CALCIUM CARBONATE
     Dosage: 500 MG, 3X/DAY
     Route: 048
  3. FUROSEMIDE. [Concomitant]
     Active Substance: FUROSEMIDE
     Dosage: 40 MG, 2X/DAY
     Route: 048
  4. KLOR-CON [Concomitant]
     Active Substance: POTASSIUM CHLORIDE
     Dosage: 40 MEQ, UNK
     Route: 048
     Dates: start: 201108, end: 201108
  5. ALPRAZOLAM. [Concomitant]
     Active Substance: ALPRAZOLAM
     Dosage: 0.25 MG, 1X/DAY
     Route: 048
  6. CALCIUM GLUCONATE. [Concomitant]
     Active Substance: CALCIUM GLUCONATE
     Route: 042
  7. CAPTOPRIL. [Concomitant]
     Active Substance: CAPTOPRIL
     Dosage: 0.25 MG, 3X/DAY
     Route: 048
  8. TORSEMIDE. [Concomitant]
     Active Substance: TORSEMIDE
     Dosage: 160 MG, 1X/DAY
     Route: 048
  9. SYNTHROID [Concomitant]
     Active Substance: LEVOTHYROXINE SODIUM
     Dosage: 20 IU, UNK
     Route: 058
  10. ALLOPURINOL. [Concomitant]
     Active Substance: ALLOPURINOL
     Dosage: 300 MG, 1X/DAY
  11. PRILOSEC [Suspect]
     Active Substance: OMEPRAZOLE MAGNESIUM
     Indication: FLATULENCE
     Dosage: UNK
     Route: 048
     Dates: start: 1995, end: 20150424
  12. PROPRANOLOL [Concomitant]
     Active Substance: PROPRANOLOL HYDROCHLORIDE
     Dosage: 20 MG, 1X/DAY
     Route: 048
     Dates: start: 200811, end: 201109
  13. HYDRALAZINE [Concomitant]
     Active Substance: HYDRALAZINE HYDROCHLORIDE
     Dosage: 50 MG, 3X/DAY
     Route: 048
  14. LEVEMIR [Concomitant]
     Active Substance: INSULIN DETEMIR
     Dosage: 15 IU, UNK
     Route: 058
  15. PROPYLTHIOURACIL. [Concomitant]
     Active Substance: PROPYLTHIOURACIL
     Dosage: 150 MG, 1X/DAY
     Route: 048
     Dates: start: 201108, end: 201308
  16. ASPIRIN (E.C.) [Concomitant]
     Active Substance: ASPIRIN
     Dosage: 81 MG, 1X/DAY
     Route: 048
     Dates: start: 200810
  17. LABETALOL [Concomitant]
     Active Substance: LABETALOL\LABETALOL HYDROCHLORIDE
     Dosage: 200 MG, 1X/DAY
     Route: 048
     Dates: start: 201408
  18. GLUCAGON. [Concomitant]
     Active Substance: GLUCAGON
     Dosage: 1 MG, 1X/DAY
     Route: 030
  19. MICRO-K [Concomitant]
     Active Substance: POTASSIUM CHLORIDE
     Dosage: 10 MEQ, UNK
     Route: 048
  20. NEXIUM 24HR [Suspect]
     Active Substance: ESOMEPRAZOLE MAGNESIUM
     Indication: GASTROINTESTINAL DISORDER
     Dosage: UNK
     Route: 048
     Dates: start: 1995, end: 20150424
  21. PALONOSETRON. [Concomitant]
     Active Substance: PALONOSETRON HYDROCHLORIDE
     Dosage: 0.25 MG IN 50 ML SALINE
  22. METFORMIN [Concomitant]
     Active Substance: METFORMIN HYDROCHLORIDE
  23. VITAMIN D [ERGOCALCIFEROL] [Concomitant]
     Active Substance: ERGOCALCIFEROL
     Dosage: 50000 IU, UNK
     Route: 048
  24. KEPPRA [Concomitant]
     Active Substance: LEVETIRACETAM
     Dosage: 500 MG, 2X/DAY
     Route: 048
     Dates: start: 200810, end: 200811
  25. METOCLOPRAMIDE. [Concomitant]
     Active Substance: METOCLOPRAMIDE
     Dosage: 5 MG, 3X/DAY
     Route: 042
     Dates: start: 200811, end: 200812
  26. CLONIDINE. [Concomitant]
     Active Substance: CLONIDINE
     Dosage: 0.1 MG, 1X/DAY
     Route: 048
  27. TYLENOL 8HR [Concomitant]
     Active Substance: ACETAMINOPHEN
     Dosage: 650 MG, 1X/DAY
     Dates: start: 20090823
  28. LEVALBUTEROL [LEVOSALBUTAMOL] [Concomitant]
  29. RANITIDINE. [Concomitant]
     Active Substance: RANITIDINE
     Dosage: 150 MG, 1X/DAY
     Route: 048
  30. HYDROCORTISONE. [Concomitant]
     Active Substance: HYDROCORTISONE
     Dosage: 1 %, UNK
  31. LISINOPRIL. [Concomitant]
     Active Substance: LISINOPRIL
     Dosage: 20 MG, 2X/DAY
     Route: 048
  32. NEXIUM [Suspect]
     Active Substance: ESOMEPRAZOLE MAGNESIUM
     Dosage: UNK
     Route: 048
     Dates: start: 1995, end: 20150424
  33. PROTONIX [Suspect]
     Active Substance: PANTOPRAZOLE SODIUM
     Indication: GASTROOESOPHAGEAL REFLUX DISEASE
     Dosage: UNK
     Route: 065
     Dates: start: 1995, end: 20150424
  34. RITUXAN [Concomitant]
     Active Substance: RITUXIMAB
     Dosage: NORMAL SALINE
  35. NOVOLOG [Concomitant]
     Active Substance: INSULIN ASPART
     Dosage: 5 MG, 1X/DAY
     Route: 048
  36. FUROSEMIDE. [Concomitant]
     Active Substance: FUROSEMIDE
     Dosage: 40 MG/4 ML10MG/ML DAILY
     Route: 042
  37. METOCLOPRAMIDE. [Concomitant]
     Active Substance: METOCLOPRAMIDE
     Dosage: 5 MG, 3X/DAY
     Route: 042
     Dates: start: 201108
  38. HYDROCODONE BITARTRATE AND ACETAMINOPHEN [Concomitant]
     Active Substance: ACETAMINOPHEN\HYDROCODONE BITARTRATE
     Route: 048
     Dates: start: 201108, end: 201308
  39. POLYETHYLENE GLYCOL [Concomitant]
     Active Substance: POLYETHYLENE GLYCOLS
     Dosage: 17 G, 1X/DAY
     Route: 048
  40. LIDOCAINE. [Concomitant]
     Active Substance: LIDOCAINE
     Dosage: 1 %, UNK
     Dates: start: 20090825
  41. FLEET ENEMA [Concomitant]
     Active Substance: SODIUM PHOSPHATE, DIBASIC\SODIUM PHOSPHATE, MONOBASIC
     Indication: CONSTIPATION
     Route: 048
     Dates: start: 20090823
  42. ALBUTEROL HFA [Concomitant]
     Active Substance: ALBUTEROL SULFATE
     Dosage: 2.5 MG IN 0.5 ML
  43. LORAZEPAM. [Concomitant]
     Active Substance: LORAZEPAM
     Route: 042
  44. PROTONIX [Suspect]
     Active Substance: PANTOPRAZOLE SODIUM
     Indication: FLATULENCE
     Dosage: UNK
     Route: 065
     Dates: start: 2000, end: 20150427
  45. CIMETIDINE [Concomitant]
     Active Substance: CIMETIDINE
  46. NORVASC [Concomitant]
     Active Substance: AMLODIPINE BESYLATE
     Dosage: 5 MG, 1X/DAY
     Route: 048
  47. FOLIC ACID. [Concomitant]
     Active Substance: FOLIC ACID
     Dosage: 800 UG, UNK
     Route: 048
     Dates: start: 201108
  48. PROPYLTHIOURACIL. [Concomitant]
     Active Substance: PROPYLTHIOURACIL
     Dosage: 150 MG, 1X/DAY
     Route: 048
     Dates: start: 200811, end: 201308
  49. METOPROLOL TARTRATE. [Concomitant]
     Active Substance: METOPROLOL TARTRATE
     Dosage: 81 MG, 1X/DAY
     Route: 048
     Dates: start: 200810
  50. ONDANSETRON [Concomitant]
     Active Substance: ONDANSETRON
     Indication: NAUSEA
     Dosage: 4 MG, 1X/DAY
     Route: 042
  51. ZOFRAN [Concomitant]
     Active Substance: ONDANSETRON HYDROCHLORIDE
  52. DEMADEX [TORASEMIDE] [Concomitant]
     Dosage: 100 MG, 2X/DAY
     Route: 048
  53. NEXIUM [Suspect]
     Active Substance: ESOMEPRAZOLE MAGNESIUM
     Dosage: 40 MG, 1X/DAY
     Route: 048
     Dates: end: 20131108
  54. PROTONIX [Suspect]
     Active Substance: PANTOPRAZOLE SODIUM
     Indication: GASTROINTESTINAL DISORDER
     Dosage: 40 MG, 2X/DAY
     Route: 065
  55. PROZAC [Concomitant]
     Active Substance: FLUOXETINE HYDROCHLORIDE
     Indication: BIPOLAR DISORDER
     Dosage: UNK
     Dates: start: 1993
  56. PROZAC [Concomitant]
     Active Substance: FLUOXETINE HYDROCHLORIDE
     Indication: BIPOLAR I DISORDER
  57. FLUDARA [Concomitant]
     Active Substance: FLUDARABINE PHOSPHATE
     Dosage: IN 100 ML SALINE
  58. LANTUS [Concomitant]
     Active Substance: INSULIN GLARGINE
  59. PROPRANOLOL [Concomitant]
     Active Substance: PROPRANOLOL HYDROCHLORIDE
     Dosage: 80 MG, 1X/DAY
     Route: 048
     Dates: start: 201108
  60. VITAMIN B12 AAA [Concomitant]
     Dosage: 1000 UG, UNK
     Route: 048
     Dates: start: 201108
  61. METOLAZONE. [Concomitant]
     Active Substance: METOLAZONE
     Dosage: 10 MG, 2X/DAY
     Route: 048
  62. OXYGEN. [Concomitant]
     Active Substance: OXYGEN
     Dosage: 300 MG, 2X/DAY
  63. NEXIUM [Suspect]
     Active Substance: ESOMEPRAZOLE MAGNESIUM
     Indication: FLATULENCE
     Dosage: UNK
     Route: 048
     Dates: start: 2000, end: 20150427
  64. NEXIUM [Suspect]
     Active Substance: ESOMEPRAZOLE MAGNESIUM
     Indication: GASTROINTESTINAL DISORDER
     Dosage: 40 MG, 1X/DAY
     Route: 048
     Dates: start: 201108, end: 201308
  65. DIPHENHYDRAMINE. [Concomitant]
     Active Substance: DIPHENHYDRAMINE
  66. ACETAMINOPHEN. [Concomitant]
     Active Substance: ACETAMINOPHEN
     Route: 048
  67. CYTOXAN [Concomitant]
     Active Substance: CYCLOPHOSPHAMIDE
     Dosage: IN 250 ML NORMAL SALINE
  68. PROPYLTHIOURACIL. [Concomitant]
     Active Substance: PROPYLTHIOURACIL
     Dosage: 150 MG, 1X/DAY
     Route: 048
     Dates: start: 200810, end: 200811
  69. LABETALOL [Concomitant]
     Active Substance: LABETALOL\LABETALOL HYDROCHLORIDE
     Dosage: 20 MG, 1X/DAY
     Route: 042
     Dates: start: 200810, end: 201108
  70. CARVEDILOL. [Concomitant]
     Active Substance: CARVEDILOL
     Dosage: 12.5 MG, 2X/DAY
     Route: 048
  71. NEXIUM 24HR [Suspect]
     Active Substance: ESOMEPRAZOLE MAGNESIUM
     Indication: FLATULENCE
     Dosage: UNK
     Route: 048
     Dates: start: 2000, end: 20150427
  72. PREVACID [Suspect]
     Active Substance: LANSOPRAZOLE
     Dosage: UNK
     Route: 065
     Dates: start: 1995, end: 20150424
  73. KYTRIL [Concomitant]
     Active Substance: GRANISETRON HYDROCHLORIDE
     Dosage: 1 MG IN 50 ML SALINE
  74. LEVOTHYROXINE. [Concomitant]
     Active Substance: LEVOTHYROXINE
     Dosage: 100 UG, UNK
     Route: 048
  75. VALSARTAN. [Concomitant]
     Active Substance: VALSARTAN
     Dosage: 80 MG, 1X/DAY
     Route: 048
     Dates: start: 200810, end: 201108
  76. THEOPHYLLINE [Concomitant]
     Active Substance: THEOPHYLLINE ANHYDROUS
     Dosage: 100 MG, 2X/DAY
     Route: 048
  77. ACYCLOVIR [ACICLOVIR] [Concomitant]
     Active Substance: ACYCLOVIR
     Dosage: 300 MG, 2X/DAY

REACTIONS (22)
  - Nephropathy [Not Recovered/Not Resolved]
  - End stage renal disease [Fatal]
  - Chronic kidney disease [Unknown]
  - Tubulointerstitial nephritis [Unknown]
  - Cystitis interstitial [Unknown]
  - Acute coronary syndrome [Unknown]
  - Depression [Unknown]
  - Cerebrovascular accident [Unknown]
  - Death [Fatal]
  - Thrombosis [Unknown]
  - Condition aggravated [Unknown]
  - Cardiovascular disorder [Not Recovered/Not Resolved]
  - Ventricular hypertrophy [Fatal]
  - Cardio-respiratory arrest [Fatal]
  - Hypertensive cardiomegaly [Fatal]
  - Seizure [Fatal]
  - Multiple organ dysfunction syndrome [Not Recovered/Not Resolved]
  - Stroke in evolution [Unknown]
  - Acute kidney injury [Unknown]
  - Dementia [Not Recovered/Not Resolved]
  - Renal failure [Not Recovered/Not Resolved]
  - Cardiac failure congestive [Unknown]

NARRATIVE: CASE EVENT DATE: 20090810
